FAERS Safety Report 8859652 (Version 1)
Quarter: 2012Q4

REPORT INFORMATION
  Report Type: 
  Country: GR (occurrence: GR)
  Receive Date: 20121025
  Receipt Date: 20121025
  Transmission Date: 20130627
  Serious: Yes (Other)
  Sender: FDA-Public Use
  Company Number: GR-BAYER-2012-109395

PATIENT
  Age: 60 Year
  Sex: Male

DRUGS (1)
  1. NEXAVAR [Suspect]
     Indication: METASTATIC RENAL CELL CARCINOMA
     Dosage: 400 mg, QD
     Route: 048
     Dates: start: 200810, end: 201006

REACTIONS (4)
  - Lung neoplasm [Not Recovered/Not Resolved]
  - Bone marrow failure [None]
  - Asthenia [None]
  - Hyperlipidaemia [None]
